FAERS Safety Report 7355161-1 (Version None)
Quarter: 2011Q1

REPORT INFORMATION
  Report Type: 
  Country: None (occurrence: None)
  Receive Date: 20110307
  Receipt Date: 20100428
  Transmission Date: 20110831
  Serious: No
  Sender: FDA-Public Use
  Company Number: AEUSA201000139

PATIENT
  Age: 40 Year
  Sex: Female

DRUGS (2)
  1. PROLASTIN-C [Suspect]
     Indication: ALPHA-1 ANTI-TRYPSIN DEFICIENCY
     Dosage: 3240 MG, QW, IV
     Route: 042
     Dates: start: 20100425
  2. PROLASTIN [Concomitant]

REACTIONS (2)
  - PAIN [None]
  - MYALGIA [None]
